FAERS Safety Report 12896188 (Version 1)
Quarter: 2016Q4

REPORT INFORMATION
  Report Type: Spontaneous
  Country: US (occurrence: US)
  Receive Date: 20161031
  Receipt Date: 20161031
  Transmission Date: 20170207
  Serious: No
  Sender: FDA-Public Use
  Company Number: US-JAZZ-2016-US-016092

PATIENT
  Sex: Male

DRUGS (14)
  1. XYREM [Suspect]
     Active Substance: SODIUM OXYBATE
     Indication: CATAPLEXY
     Dosage: 3 G, BID
     Route: 048
     Dates: start: 200510, end: 200701
  2. XYREM [Suspect]
     Active Substance: SODIUM OXYBATE
     Dosage: 4.5 G, BID
     Route: 048
     Dates: start: 200701
  3. AZITHROMYCIN ANHYDROUS. [Concomitant]
     Active Substance: AZITHROMYCIN ANHYDROUS
  4. MULTIVITAMINS [Concomitant]
     Active Substance: VITAMINS
  5. VITAMIN C [Concomitant]
     Active Substance: ASCORBIC ACID
  6. XYREM [Suspect]
     Active Substance: SODIUM OXYBATE
     Indication: NARCOLEPSY
     Dosage: 1.5 G, BID
     Route: 048
     Dates: start: 200411, end: 200510
  7. METOPROLOL SUCCINATE. [Concomitant]
     Active Substance: METOPROLOL SUCCINATE
  8. RANEXA [Concomitant]
     Active Substance: RANOLAZINE
  9. BRILINTA [Concomitant]
     Active Substance: TICAGRELOR
  10. ATORVASTATIN [Concomitant]
     Active Substance: ATORVASTATIN
  11. NITROSTAT [Concomitant]
     Active Substance: NITROGLYCERIN
  12. CLARITIN [Concomitant]
     Active Substance: LORATADINE
  13. ASPIRIN ADULT [Concomitant]
  14. PRINIVIL [Concomitant]
     Active Substance: LISINOPRIL

REACTIONS (1)
  - Bronchitis [Not Recovered/Not Resolved]
